FAERS Safety Report 5309844-5 (Version None)
Quarter: 2007Q2

REPORT INFORMATION
  Report Type: 
  Country: None (occurrence: None)
  Receive Date: 20070427
  Receipt Date: 20060106
  Transmission Date: 20071010
  Serious: Yes (Life-Threatening, Hospitalization)
  Sender: FDA-Public Use
  Company Number: CH-ROCHE-425599

PATIENT
  Age: 16 Year
  Sex: Female

DRUGS (1)
  1. ROACCUTAN [Suspect]
     Route: 048
     Dates: start: 20050119, end: 20050413

REACTIONS (7)
  - ANXIETY [None]
  - BLOOD CHOLESTEROL INCREASED [None]
  - PARANOIA [None]
  - PHARYNGITIS [None]
  - PSYCHOTIC DISORDER [None]
  - SUICIDAL IDEATION [None]
  - SUICIDE ATTEMPT [None]
